FAERS Safety Report 15011388 (Version 2)
Quarter: 2018Q2

REPORT INFORMATION
  Report Type: Spontaneous
  Country: US (occurrence: US)
  Receive Date: 20180614
  Receipt Date: 20180619
  Transmission Date: 20180711
  Serious: Yes (Other)
  Sender: FDA-Public Use
  Company Number: US-PFIZER INC-2018239628

PATIENT
  Age: 48 Year
  Sex: Male

DRUGS (1)
  1. ALPRAZOLAM. [Suspect]
     Active Substance: ALPRAZOLAM
     Dosage: UNK (UNKNOWN DOSE)

REACTIONS (4)
  - Withdrawal syndrome [Unknown]
  - Drug abuse [Unknown]
  - Delirium [Unknown]
  - Agitation [Recovering/Resolving]
